FAERS Safety Report 18788612 (Version 1)
Quarter: 2021Q1

REPORT INFORMATION
  Report Type: Spontaneous
  Country: US (occurrence: US)
  Receive Date: 20210125
  Receipt Date: 20210125
  Transmission Date: 20210419
  Serious: Yes (Other)
  Sender: FDA-Public Use
  Company Number: US-ROCHE-2705636

PATIENT
  Sex: Female

DRUGS (1)
  1. RITUXAN [Suspect]
     Active Substance: RITUXIMAB
     Indication: IMMUNE THROMBOCYTOPENIA
     Dosage: 10 MG/ML SDV
     Route: 042
     Dates: start: 20201023

REACTIONS (3)
  - Off label use [Unknown]
  - Vaginal abscess [Unknown]
  - Intentional product use issue [Unknown]
